FAERS Safety Report 21254090 (Version 1)
Quarter: 2022Q3

REPORT INFORMATION
  Report Type: Spontaneous
  Country: US (occurrence: None)
  Receive Date: 20220824
  Receipt Date: 20220824
  Transmission Date: 20221027
  Serious: Yes (Disabling)
  Sender: FDA-Public Use
  Company Number: None

PATIENT
  Age: 66 Year
  Sex: Female
  Weight: 70.31 kg

DRUGS (1)
  1. BRIMONIDINE TARTRATE AND TIMOLOL MALEATE [Suspect]
     Active Substance: BRIMONIDINE TARTRATE\TIMOLOL MALEATE
     Indication: Open angle glaucoma
     Dosage: OTHER QUANTITY : 0.2-0.5%;?OTHER FREQUENCY : 1 GTT BED OS; IN LEFT EYE?
     Route: 031

REACTIONS (2)
  - Optic nerve injury [None]
  - Blindness [None]

NARRATIVE: CASE EVENT DATE: 20220715
